FAERS Safety Report 5669646-7 (Version None)
Quarter: 2008Q1

REPORT INFORMATION
  Report Type: 
  Country: None (occurrence: None)
  Receive Date: 20080317
  Receipt Date: 20080306
  Transmission Date: 20080703
  Serious: Yes (Hospitalization)
  Sender: FDA-Public Use
  Company Number: CA-SANOFI-SYNTHELABO-F01200800282

PATIENT
  Sex: Female

DRUGS (26)
  1. PLAVIX [Concomitant]
     Dates: start: 20070807, end: 20070808
  2. ASPIRIN [Concomitant]
  3. HEPARIN [Concomitant]
     Dates: start: 20070807, end: 20070810
  4. FOLATE SODIUM [Concomitant]
  5. MUCOMYST [Concomitant]
     Dates: start: 20070809, end: 20070811
  6. NORVASC [Concomitant]
  7. TYLENOL (CAPLET) [Concomitant]
     Dosage: 650 MG
     Dates: start: 20070807
  8. PARIET [Concomitant]
     Dates: end: 20071015
  9. METOPROLOL TARTRATE [Concomitant]
  10. HYDRALAZINE HCL [Concomitant]
  11. VITAMIN B3 [Concomitant]
  12. AMITRIPTYLINE HCL [Concomitant]
  13. LASIX [Concomitant]
     Dates: start: 20070807, end: 20070807
  14. CALCIUM [Concomitant]
  15. HYDROCHLOROTHIAZIDE [Concomitant]
     Dates: end: 20070904
  16. RANITIDINE [Concomitant]
     Dates: end: 20070811
  17. CYANOCOBALAMIN [Concomitant]
  18. SIMVASTATIN [Concomitant]
  19. LEVOTHYROXINE SODIUM [Concomitant]
  20. RAMIPRIL [Suspect]
     Dates: start: 20070808
  21. RAMIPRIL [Suspect]
     Dates: start: 20070906
  22. DICLOFENAC [Suspect]
     Dates: end: 20070904
  23. CLOPIDOGREL [Suspect]
     Indication: ACUTE CORONARY SYNDROME
     Route: 048
     Dates: start: 20070808
  24. VITAMIN B-12 [Concomitant]
  25. NITROGLYCERIN [Concomitant]
     Dates: start: 20070807, end: 20070807
  26. NITROGLYCERIN [Concomitant]
     Dates: start: 20070807, end: 20070807

REACTIONS (2)
  - CHEST PAIN [None]
  - HYPERKALAEMIA [None]
